FAERS Safety Report 4880045-8 (Version None)
Quarter: 2006Q1

REPORT INFORMATION
  Report Type: 
  Country: None (occurrence: None)
  Receive Date: 20060111
  Receipt Date: 20060102
  Transmission Date: 20060701
  Serious: Yes (Other)
  Sender: FDA-Public Use
  Company Number: 2006001658

PATIENT
  Age: 32 Year
  Sex: Male
  Weight: 79.3795 kg

DRUGS (4)
  1. ZANTAC [Suspect]
     Indication: GASTRIC DISORDER
     Dosage: 10 PILLS IN ONE NIGHT, ORAL
     Route: 048
     Dates: start: 20060101, end: 20060101
  2. SCOPOLAMINE AMINOXIDE HYDROBROMIDE (SCOPOLAMINE AMINOXIDE HYDROBROMIDE [Concomitant]
  3. ALPRAZOLAM [Concomitant]
  4. HYDROCODONE BITARTRATE [Concomitant]

REACTIONS (2)
  - OVERDOSE [None]
  - SOMNOLENCE [None]
